FAERS Safety Report 14294843 (Version 1)
Quarter: 2017Q4

REPORT INFORMATION
  Report Type: Spontaneous
  Country: US (occurrence: US)
  Receive Date: 20171218
  Receipt Date: 20171218
  Transmission Date: 20180321
  Serious: Yes (Other)
  Sender: FDA-Public Use
  Company Number: US-ASTRAZENECA-2017SF18832

PATIENT
  Age: 28184 Day
  Sex: Female

DRUGS (13)
  1. LORAZEPAM. [Concomitant]
     Active Substance: LORAZEPAM
  2. ASPIRIN EC [Concomitant]
     Active Substance: ASPIRIN
  3. FASLODEX [Suspect]
     Active Substance: FULVESTRANT
     Dosage: 250MG/5ML
     Route: 030
  4. IBRANCE [Suspect]
     Active Substance: PALBOCICLIB
     Indication: BONE NEOPLASM
     Route: 048
  5. CALCIUM [Concomitant]
     Active Substance: CALCIUM
  6. IBRANCE [Suspect]
     Active Substance: PALBOCICLIB
     Indication: BONE NEOPLASM
     Route: 048
     Dates: start: 20170713, end: 20170908
  7. COSAMIN DS [Concomitant]
  8. GLUCOSAMINE [Concomitant]
     Active Substance: GLUCOSAMINE
  9. ATORVASTATIN CALCIUM. [Concomitant]
     Active Substance: ATORVASTATIN CALCIUM
  10. XGEVA [Concomitant]
     Active Substance: DENOSUMAB
     Dosage: SOL120MG/1. 7ML
  11. METFORMIN HYDROCHLORIDE. [Concomitant]
     Active Substance: METFORMIN HYDROCHLORIDE
  12. MULTIVITAMINS [Concomitant]
     Active Substance: VITAMINS
  13. FISH OIL [Concomitant]
     Active Substance: FISH OIL

REACTIONS (2)
  - Neutropenia [Recovered/Resolved]
  - Muscle spasms [Recovered/Resolved]

NARRATIVE: CASE EVENT DATE: 20170728
